FAERS Safety Report 21126224 (Version 1)
Quarter: 2022Q3

REPORT INFORMATION
  Report Type: Spontaneous
  Country: US (occurrence: None)
  Receive Date: 20220724
  Receipt Date: 20220724
  Transmission Date: 20221027
  Serious: Yes (Other)
  Sender: FDA-Public Use
  Company Number: None

PATIENT
  Age: 46 Year
  Sex: Female
  Weight: 68.4 kg

DRUGS (2)
  1. FLUCONAZOLE [Suspect]
     Active Substance: FLUCONAZOLE
     Indication: Candida infection
     Dosage: OTHER QUANTITY : 1 TABLET(S);?OTHER FREQUENCY : 1 EVERY 3 DAYS;?
     Route: 048
     Dates: start: 20220722, end: 20220724
  2. TOPAMAX [Concomitant]
     Active Substance: TOPIRAMATE

REACTIONS (6)
  - Anger [None]
  - Erythema [None]
  - Rash macular [None]
  - Rash [None]
  - Piloerection [None]
  - Chills [None]

NARRATIVE: CASE EVENT DATE: 20220724
